FAERS Safety Report 7633932-1 (Version None)
Quarter: 2011Q3

REPORT INFORMATION
  Report Type: 
  Country: None (occurrence: None)
  Receive Date: 20110725
  Receipt Date: 20110718
  Transmission Date: 20111222
  Serious: Yes (Hospitalization, Other)
  Sender: FDA-Public Use
  Company Number: US-ALEXION PHARMACEUTICALS INC.-A201101065

PATIENT
  Sex: Male

DRUGS (9)
  1. LORTAB [Concomitant]
     Dosage: UNK
  2. SILVER NITRATE [Concomitant]
     Dosage: UNK
  3. ARIXTRA [Concomitant]
     Dosage: UNK
  4. CARAFATE [Concomitant]
     Dosage: UNK
  5. AMBIEN [Concomitant]
     Dosage: UNK
  6. LOMOTIL [Concomitant]
     Dosage: UNK
  7. HYDROCODONE BITARTRATE [Concomitant]
     Dosage: UNK
  8. PHENERGAN HCL [Concomitant]
     Dosage: UNK
  9. SOLIRIS [Suspect]
     Indication: PAROXYSMAL NOCTURNAL HAEMOGLOBINURIA
     Dosage: UNK
     Route: 042

REACTIONS (4)
  - COLITIS [None]
  - ARTHROPOD BITE [None]
  - PULMONARY OEDEMA [None]
  - SEPTIC SHOCK [None]
